FAERS Safety Report 16265336 (Version 1)
Quarter: 2019Q2

REPORT INFORMATION
  Report Type: Spontaneous
  Country: US (occurrence: US)
  Receive Date: 20190501
  Receipt Date: 20190501
  Transmission Date: 20190711
  Serious: Yes (Hospitalization)
  Sender: FDA-Public Use
  Company Number: None

PATIENT
  Age: 41 Year
  Sex: Female

DRUGS (5)
  1. ATOVAQUONE. [Suspect]
     Active Substance: ATOVAQUONE
     Indication: IMMUNE SYSTEM DISORDER
     Route: 048
     Dates: start: 20181113
  2. HYDROXYUREA, VALACYCLOVIR [Concomitant]
  3. BUDESONIDE, ATOVAQUONE, URSODIOL, CAC ACETATE, NAC 600, ACYCLOVIR [Concomitant]
  4. TRETINOIN, POTASSIUM, PHOSPHOR ACD SOL, POT CL MICRO TAB [Concomitant]
  5. LEVOFLOXACIN, MAG OXIDE, NOXAFIL, VIRT-PHOS, RULOX, ONDANSETRON [Concomitant]

REACTIONS (1)
  - Therapy cessation [None]

NARRATIVE: CASE EVENT DATE: 20190430
